FAERS Safety Report 22098836 (Version 1)
Quarter: 2023Q1

REPORT INFORMATION
  Report Type: Spontaneous
  Country: JP (occurrence: JP)
  Receive Date: 20230315
  Receipt Date: 20230315
  Transmission Date: 20230418
  Serious: Yes (Other)
  Sender: FDA-Public Use
  Company Number: JP-TAIHO-2023-001615

PATIENT
  Age: 64 Year
  Sex: Male

DRUGS (7)
  1. ABRAXANE [Suspect]
     Active Substance: PACLITAXEL
     Indication: HER2 positive gastric cancer
     Dosage: NI, 80% DOSE, CYCLE 1
     Route: 041
  2. ABRAXANE [Suspect]
     Active Substance: PACLITAXEL
     Dosage: NI, 50% DOSE, CYCLE 2
     Route: 041
  3. ABRAXANE [Suspect]
     Active Substance: PACLITAXEL
     Dosage: NI, 40% DOSE, CYCLE 3
     Route: 041
  4. ABRAXANE [Suspect]
     Active Substance: PACLITAXEL
     Dosage: NI, 35% DOSE, CYCLE 4
     Route: 041
  5. ABRAXANE [Suspect]
     Active Substance: PACLITAXEL
     Dosage: DOSE NOT REPORTED/DAY, 30% DOSE, CYCLE 5-7 FOR 2 WEEK
     Route: 041
  6. CYRAMZA [Concomitant]
     Active Substance: RAMUCIRUMAB
     Indication: HER2 positive gastric cancer
     Dosage: NI, 100% DOSE, CYCLE 1-4
  7. CYRAMZA [Concomitant]
     Active Substance: RAMUCIRUMAB
     Dosage: DOSE NOT REPORTED/DAY, 100% DOSE, CYCLE 5-7

REACTIONS (4)
  - Febrile neutropenia [Recovered/Resolved]
  - White blood cell count decreased [Recovered/Resolved]
  - Neutrophil count decreased [Recovered/Resolved]
  - Ascites [Unknown]
